FAERS Safety Report 5411991-4 (Version None)
Quarter: 2007Q3

REPORT INFORMATION
  Report Type: 
  Country: None (occurrence: None)
  Receive Date: 20070810
  Receipt Date: 20070810
  Transmission Date: 20080115
  Serious: No
  Sender: FDA-Public Use
  Company Number: None

PATIENT
  Age: 63 Year
  Sex: Male

DRUGS (1)
  1. GADOLINIUM   UNKNOWN   UNKNOWN [Suspect]
     Indication: NUCLEAR MAGNETIC RESONANCE IMAGING
     Dates: start: 20060730, end: 20060730

REACTIONS (2)
  - BIOPSY [None]
  - UNEVALUABLE EVENT [None]
